FAERS Safety Report 12245986 (Version 1)
Quarter: 2016Q2

REPORT INFORMATION
  Report Type: Spontaneous
  Country: US (occurrence: US)
  Receive Date: 20160407
  Receipt Date: 20160407
  Transmission Date: 20160815
  Serious: No
  Sender: FDA-Public Use
  Company Number: PHEH2016US008115

PATIENT
  Age: 29 Year
  Sex: Female

DRUGS (2)
  1. GILENYA [Suspect]
     Active Substance: FINGOLIMOD HYDROCHLORIDE
     Indication: MULTIPLE SCLEROSIS
     Dosage: 0.5 MG, QD
     Route: 048
     Dates: start: 20140115, end: 20150301
  2. AMPYRA [Concomitant]
     Active Substance: DALFAMPRIDINE
     Indication: MULTIPLE SCLEROSIS
     Dosage: 20 MG, BID
     Route: 048
     Dates: start: 20140415

REACTIONS (4)
  - Alopecia [Unknown]
  - Muscular weakness [Unknown]
  - Palpitations [Unknown]
  - Lymphopenia [Unknown]

NARRATIVE: CASE EVENT DATE: 20140115
